FAERS Safety Report 21016954 (Version 1)
Quarter: 2022Q2

REPORT INFORMATION
  Report Type: Spontaneous
  Country: US (occurrence: None)
  Receive Date: 20220627
  Receipt Date: 20220627
  Transmission Date: 20220721
  Serious: No
  Sender: FDA-Public Use
  Company Number: None

PATIENT
  Age: 29 Year
  Sex: Female
  Weight: 85.5 kg

DRUGS (8)
  1. DEXTROAMPHET SACCHARAT, AMPHET ASPARTATE, DEXTROAMPHET SULFATE AND AMP [Suspect]
     Active Substance: AMPHETAMINE ASPARTATE\AMPHETAMINE SULFATE\DEXTROAMPHETAMINE SACCHARATE\DEXTROAMPHETAMINE SULFATE
     Indication: Attention deficit hyperactivity disorder
     Dosage: OTHER QUANTITY : 1 CAPSULE(S);?
     Route: 048
     Dates: start: 20211215, end: 20220627
  2. Propranolol er (80mg) [Concomitant]
  3. Adderall xr (20mg) [Concomitant]
  4. Iron (65mg) [Concomitant]
  5. FLUTICASONE [Concomitant]
  6. MAGNESIUM GLYCINATE [Concomitant]
  7. Riboflavin (B2) 400mg [Concomitant]
  8. B12 1000 mcg [Concomitant]

REACTIONS (7)
  - Product substitution issue [None]
  - Drug ineffective [None]
  - Asthenia [None]
  - Disturbance in attention [None]
  - Mental impairment [None]
  - Impaired quality of life [None]
  - Insurance issue [None]

NARRATIVE: CASE EVENT DATE: 20211215
